FAERS Safety Report 10574407 (Version 1)
Quarter: 2014Q4

REPORT INFORMATION
  Report Type: Spontaneous
  Country: US (occurrence: US)
  Receive Date: 20141110
  Receipt Date: 20141110
  Transmission Date: 20150529
  Serious: Yes (Hospitalization, Congenital Anomaly)
  Sender: FDA-Public Use
  Company Number: US-TEVA-519993USA

PATIENT
  Age: 61 Year
  Sex: Female
  Weight: 95.34 kg

DRUGS (14)
  1. NORVASC [Concomitant]
     Active Substance: AMLODIPINE BESYLATE
     Indication: PRODUCT USED FOR UNKNOWN INDICATION
     Dosage: 5 MILLIGRAM DAILY;
     Route: 048
  2. COREG [Concomitant]
     Active Substance: CARVEDILOL
     Indication: PRODUCT USED FOR UNKNOWN INDICATION
     Dosage: 25 MILLIGRAM DAILY;
     Route: 048
  3. SYNTHROID(LEVOTHYROXINE SODIUM) [Concomitant]
     Indication: PRODUCT USED FOR UNKNOWN INDICATION
     Dosage: 150 MICROGRAM DAILY;
     Route: 048
  4. ZYRTEC(CETIRIZINE HYDROCHLORIDE) [Concomitant]
     Indication: PRODUCT USED FOR UNKNOWN INDICATION
     Route: 048
  5. KALBITOR [Suspect]
     Active Substance: ECALLANTIDE
     Dosage: PRN
     Route: 058
     Dates: start: 201409, end: 201409
  6. PROAIR(SALBUTAMOL SULFATE) [Concomitant]
     Indication: PRODUCT USED FOR UNKNOWN INDICATION
     Route: 055
  7. KALBITOR [Suspect]
     Active Substance: ECALLANTIDE
     Dosage: X1
     Route: 058
     Dates: start: 201409, end: 201409
  8. NEXIUM [Concomitant]
     Active Substance: ESOMEPRAZOLE MAGNESIUM
     Indication: PRODUCT USED FOR UNKNOWN INDICATION
     Dosage: 80 MILLIGRAM DAILY;
     Route: 048
  9. ADVAIR(SERETIDE) [Concomitant]
     Indication: PRODUCT USED FOR UNKNOWN INDICATION
     Route: 055
  10. AMOXICILLIN. [Suspect]
     Active Substance: AMOXICILLIN
     Route: 065
  11. KALBITOR [Suspect]
     Active Substance: ECALLANTIDE
     Dosage: X1
     Route: 058
     Dates: start: 20141004, end: 20141004
  12. LIPITOR(ATORVASTATIN) [Concomitant]
     Indication: PRODUCT USED FOR UNKNOWN INDICATION
     Dosage: 10 MILLIGRAM DAILY;
     Route: 048
  13. CYMBALTA(DULOXETINE HYDROCHLORID)E [Concomitant]
     Indication: PRODUCT USED FOR UNKNOWN INDICATION
     Dosage: 60 MILLIGRAM DAILY;
     Route: 048
  14. ZANTAC [Concomitant]
     Active Substance: RANITIDINE HYDROCHLORIDE
     Indication: PRODUCT USED FOR UNKNOWN INDICATION
     Dosage: QHS
     Route: 048

REACTIONS (2)
  - Hereditary angioedema [Recovered/Resolved]
  - Loss of consciousness [Recovered/Resolved]

NARRATIVE: CASE EVENT DATE: 20141004
